FAERS Safety Report 16286622 (Version 1)
Quarter: 2019Q2

REPORT INFORMATION
  Report Type: Spontaneous
  Country: SG (occurrence: SG)
  Receive Date: 20190508
  Receipt Date: 20190508
  Transmission Date: 20190711
  Serious: Yes (Other)
  Sender: FDA-Public Use
  Company Number: IND-SG-009507513-1905SGP001827

PATIENT
  Age: 42 Year
  Sex: Female

DRUGS (2)
  1. AUGMENTIN [Suspect]
     Active Substance: AMOXICILLIN\CLAVULANATE POTASSIUM
     Route: 048
  2. ARCOXIA [Suspect]
     Active Substance: ETORICOXIB

REACTIONS (2)
  - Skin exfoliation [Unknown]
  - Lip swelling [Unknown]

NARRATIVE: CASE EVENT DATE: 20170101
